FAERS Safety Report 5318117-6 (Version None)
Quarter: 2007Q2

REPORT INFORMATION
  Report Type: 
  Country: None (occurrence: None)
  Receive Date: 20070507
  Receipt Date: 20070425
  Transmission Date: 20071010
  Serious: Yes (Life-Threatening)
  Sender: FDA-Public Use
  Company Number: JP-ROCHE-495294

PATIENT
  Age: 74 Year
  Sex: Female
  Weight: 45 kg

DRUGS (2)
  1. ROCEPHIN [Suspect]
     Indication: MENINGITIS
     Route: 041
     Dates: start: 20070311, end: 20070316
  2. GASTER [Concomitant]
     Route: 041
     Dates: start: 20070312, end: 20070316

REACTIONS (1)
  - PANCYTOPENIA [None]
